FAERS Safety Report 7560609-3 (Version None)
Quarter: 2011Q2

REPORT INFORMATION
  Report Type: 
  Country: None (occurrence: None)
  Receive Date: 20110621
  Receipt Date: 20110307
  Transmission Date: 20111010
  Serious: No
  Sender: FDA-Public Use
  Company Number: US-ASTRAZENECA-2011SE12410

PATIENT
  Age: 81 Year
  Sex: Female

DRUGS (5)
  1. WARFARIN SODIUM [Concomitant]
  2. CALCIUM CARBONATE [Concomitant]
  3. ENTOCORT EC [Suspect]
     Indication: COELIAC DISEASE
     Route: 048
     Dates: start: 20110305
  4. FLECAINIDE ACETATE [Concomitant]
  5. VITAMIN TAB [Concomitant]

REACTIONS (2)
  - HYPOAESTHESIA [None]
  - CONTUSION [None]
